FAERS Safety Report 4288209-1 (Version None)
Quarter: 2004Q1

REPORT INFORMATION
  Report Type: 
  Country: None (occurrence: None)
  Receive Date: 20040209
  Receipt Date: 20030905
  Transmission Date: 20041129
  Serious: Yes (Hospitalization)
  Sender: FDA-Public Use
  Company Number: US-GLAXOSMITHKLINE-A0424887A

PATIENT
  Age: 47 Year
  Sex: Female

DRUGS (5)
  1. PAXIL [Suspect]
     Indication: DEPRESSION
     Dosage: 40MG PER DAY
     Route: 048
  2. WELLBUTRIN SR [Suspect]
     Indication: DEPRESSION
     Route: 048
  3. METHADONE HCL [Concomitant]
     Indication: PAIN
     Dosage: 10MG THREE TIMES PER DAY
     Route: 048
  4. VICODIN [Concomitant]
     Indication: PAIN
     Route: 048
  5. PREMARIN [Concomitant]
     Route: 048

REACTIONS (6)
  - ANXIETY [None]
  - CRYING [None]
  - DEPRESSION [None]
  - DRUG INEFFECTIVE [None]
  - DRUG WITHDRAWAL SYNDROME [None]
  - GASTRIC DISORDER [None]
